FAERS Safety Report 6636522-2 (Version None)
Quarter: 2010Q1

REPORT INFORMATION
  Report Type: 
  Country: None (occurrence: None)
  Receive Date: 20100316
  Receipt Date: 20100310
  Transmission Date: 20100710
  Serious: Yes (Life-Threatening, Hospitalization, Disabling, Congenital Anomaly, Other)
  Sender: FDA-Public Use
  Company Number: GB-GILEAD-2009-0023512

PATIENT
  Sex: Female
  Weight: 2.28 kg

DRUGS (9)
  1. TRUVADA [Suspect]
     Indication: HIV INFECTION
     Route: 064
     Dates: start: 20070905, end: 20081023
  2. APTIVUS [Suspect]
     Indication: HIV INFECTION
     Route: 064
     Dates: start: 20070905, end: 20081023
  3. NORVIR [Suspect]
     Indication: HIV INFECTION
     Route: 064
     Dates: start: 20060905, end: 20081023
  4. NORVIR [Suspect]
     Route: 064
     Dates: start: 20081023
  5. INTELENCE [Suspect]
     Route: 064
     Dates: start: 20081023
  6. ISENTRESS [Suspect]
     Indication: HIV INFECTION
     Route: 064
     Dates: start: 20081023, end: 20090221
  7. PREZISTA [Suspect]
     Indication: HIV INFECTION
     Route: 064
     Dates: start: 20081023
  8. PREDNISOLONE [Concomitant]
     Route: 064
  9. NOVARAPID [Concomitant]
     Indication: GESTATIONAL DIABETES
     Route: 064

REACTIONS (18)
  - ANAL ATRESIA [None]
  - BLADDER AGENESIS [None]
  - BLOOD IRON DECREASED [None]
  - CAUDAL REGRESSION SYNDROME [None]
  - CLOACAL EXSTROPHY [None]
  - CONGENITAL GENITAL MALFORMATION [None]
  - DRUG EXPOSURE DURING PREGNANCY [None]
  - EXOMPHALOS [None]
  - GASTROINTESTINAL DISORDER CONGENITAL [None]
  - GENITALIA EXTERNAL AMBIGUOUS [None]
  - LIPODYSTROPHY ACQUIRED [None]
  - MECONIUM STAIN [None]
  - MENINGOMYELOCELE [None]
  - MUSCULOSKELETAL DEFORMITY [None]
  - PREMATURE BABY [None]
  - SEPSIS [None]
  - TETHERED CORD SYNDROME [None]
  - UMBILICAL CORD ABNORMALITY [None]
